FAERS Safety Report 13286088 (Version 5)
Quarter: 2019Q3

REPORT INFORMATION
  Report Type: Spontaneous
  Country: US (occurrence: US)
  Receive Date: 20170301
  Receipt Date: 20190823
  Transmission Date: 20191004
  Serious: Yes (Other)
  Sender: FDA-Public Use
  Company Number: US-BAUSCH-BL-2017-004579

PATIENT
  Sex: Female

DRUGS (4)
  1. MURO 128 [Suspect]
     Active Substance: SODIUM CHLORIDE
     Indication: CORNEAL OEDEMA
     Route: 047
     Dates: start: 2016, end: 201904
  2. SYSTANE (HYPROMELLOSE 2910 (4000 MPA.S)) [Concomitant]
     Active Substance: HYPROMELLOSE 2910 (4000 MPA.S)
     Indication: DRY EYE
     Dosage: AS NEEDED
     Route: 047
  3. MURO 128 [Suspect]
     Active Substance: SODIUM CHLORIDE
     Route: 047
     Dates: start: 201907, end: 201907
  4. MURO 128 [Suspect]
     Active Substance: SODIUM CHLORIDE
     Dosage: AROUND 10/AUG/2019
     Route: 047
     Dates: start: 201908

REACTIONS (5)
  - Eye irritation [Recovering/Resolving]
  - Condition aggravated [Recovering/Resolving]
  - Eye pain [Recovering/Resolving]
  - Middle insomnia [Recovering/Resolving]
  - Corneal oedema [Recovering/Resolving]

NARRATIVE: CASE EVENT DATE: 2016
